FAERS Safety Report 4764507-X (Version None)
Quarter: 2005Q3

REPORT INFORMATION
  Report Type: 
  Country: None (occurrence: None)
  Receive Date: 20050909
  Receipt Date: 20050831
  Transmission Date: 20060218
  Serious: Yes (Other)
  Sender: FDA-Public Use
  Company Number: GR-JNJFOC-20050900811

PATIENT

DRUGS (3)
  1. REMICADE [Suspect]
     Indication: CROHN'S DISEASE
     Dosage: ADMINISTERED WEEKS 0, 2, 6 AND THEN EVERY 8 WEEKS.
     Route: 042
  2. PARACETAMOL [Concomitant]
     Indication: PREMEDICATION
     Route: 065
  3. HYDROCORTISONE [Concomitant]
     Indication: PREMEDICATION
     Route: 065

REACTIONS (16)
  - ALOPECIA [None]
  - ANTI-THYROID ANTIBODY [None]
  - ANTINUCLEAR ANTIBODY [None]
  - BRONCHIOLITIS [None]
  - DNA ANTIBODY [None]
  - DRUG EFFECT DECREASED [None]
  - DRUG EXPOSURE DURING PREGNANCY [None]
  - HYPOTENSION [None]
  - INFUSION SITE ERYTHEMA [None]
  - LEUKOPENIA [None]
  - RASH PSORIAFORM [None]
  - RESPIRATORY TRACT INFECTION [None]
  - SERUM SICKNESS [None]
  - SINUSITIS [None]
  - TOXIC EPIDERMAL NECROLYSIS [None]
  - TRACHEITIS [None]
